FAERS Safety Report 7584736-X (Version None)
Quarter: 2011Q2

REPORT INFORMATION
  Report Type: 
  Country: None (occurrence: None)
  Receive Date: 20110630
  Receipt Date: 20110617
  Transmission Date: 20111010
  Serious: Yes (Other)
  Sender: FDA-Public Use
  Company Number: PHHY2011BR54244

PATIENT
  Sex: Female

DRUGS (2)
  1. EXFORGE [Suspect]
     Dosage: 320 MG OF VALS AND 5 MG OF AMLO
  2. RASILEZ [Suspect]
     Dosage: 300 MG, UNK

REACTIONS (1)
  - BLOOD PRESSURE INCREASED [None]
